FAERS Safety Report 6233793-1 (Version None)
Quarter: 2009Q2

REPORT INFORMATION
  Report Type: 
  Country: None (occurrence: None)
  Receive Date: 20090618
  Receipt Date: 20090608
  Transmission Date: 20091009
  Serious: Yes (Other)
  Sender: FDA-Public Use
  Company Number: US-JNJFOC-20090603669

PATIENT
  Weight: 2.84 kg

DRUGS (7)
  1. REMICADE [Suspect]
     Dosage: APPROX. 35 WEEKS GESTATION
  2. REMICADE [Suspect]
     Dosage: APPROX. 33 WEEKS GESTATION
  3. REMICADE [Suspect]
     Indication: DRUG EXPOSURE DURING PREGNANCY
     Dosage: APPROX. 4 WEEKS GESTATION
  4. KEPPRA [Concomitant]
     Indication: DRUG EXPOSURE DURING PREGNANCY
     Dosage: 0-35 WEEKS GESTAION
  5. VITAMIN AND MINERAL PRENATAL SUPPLEMENT W/ FOLIC ACID CAP [Concomitant]
     Indication: DRUG EXPOSURE DURING PREGNANCY
     Dosage: STARTED AT 6 WEEKS
  6. PREDNISONE [Concomitant]
     Indication: DRUG EXPOSURE DURING PREGNANCY
     Dosage: DOSE: 5-20 MG DAILY (STARTED AT 12 WEEKS GESTATION)
  7. FOLIC ACID [Concomitant]
     Indication: DRUG EXPOSURE DURING PREGNANCY
     Dosage: DOSE: 4-5 MG DAILY (STARTED AT 6 WEEKS GESTATION)

REACTIONS (2)
  - DRUG EXPOSURE DURING PREGNANCY [None]
  - PREMATURE BABY [None]
